FAERS Safety Report 6997278-7 (Version None)
Quarter: 2010Q3

REPORT INFORMATION
  Report Type: 
  Country: None (occurrence: None)
  Receive Date: 20100918
  Receipt Date: 20090922
  Transmission Date: 20110219
  Serious: No
  Sender: FDA-Public Use
  Company Number: US-WYE-H11156109

PATIENT
  Sex: Female

DRUGS (6)
  1. PRISTIQ [Suspect]
     Indication: DEPRESSION
     Route: 048
     Dates: start: 20090915
  2. PRIMIDONE [Concomitant]
  3. PROPRANOLOL [Concomitant]
  4. TOPAMAX [Concomitant]
  5. MEDROL [Concomitant]
  6. PROZAC [Concomitant]

REACTIONS (3)
  - ABNORMAL DREAMS [None]
  - MIDDLE INSOMNIA [None]
  - SOMNOLENCE [None]
